FAERS Safety Report 5261090-X (Version None)
Quarter: 2007Q1

REPORT INFORMATION
  Report Type: 
  Country: None (occurrence: None)
  Receive Date: 20070309
  Receipt Date: 20070228
  Transmission Date: 20070707
  Serious: Yes (Death, Other)
  Sender: FDA-Public Use
  Company Number: US-PFIZER INC-2005145558

PATIENT
  Sex: Female
  Weight: 79.4 kg

DRUGS (12)
  1. GABAPENTIN [Suspect]
     Indication: BIPOLAR DISORDER
     Route: 048
  2. GABAPENTIN [Suspect]
     Indication: ANXIETY
  3. XANAX [Suspect]
     Indication: DEPRESSION
     Dosage: FREQ:UNKNOWN
     Route: 065
  4. XANAX [Suspect]
     Indication: PANIC DISORDER
  5. LITHIUM CARBONATE [Suspect]
     Indication: BIPOLAR DISORDER
     Dosage: FREQ:UNKNOWN
     Route: 065
  6. ZOLOFT [Suspect]
     Indication: DEPRESSION
     Dosage: DAILY DOSE:100MG
     Route: 065
  7. METHADONE HYDROCHLORIDE [Suspect]
     Indication: ILL-DEFINED DISORDER
     Dosage: FREQ:UNKNOWN
     Route: 065
  8. SEROQUEL [Suspect]
     Indication: INSOMNIA
     Dosage: FREQ:UNKNOWN
     Route: 065
  9. TYLENOL [Concomitant]
     Dosage: FREQ:UNKNOWN
     Route: 065
  10. PROMETHAZINE [Concomitant]
     Dosage: FREQ:UNKNOWN
     Route: 065
  11. HYDROCODONE [Concomitant]
     Dosage: FREQ:UNKNOWN
     Route: 065
  12. COCAINE [Concomitant]
     Dosage: FREQ:UNKNOWN
     Route: 065

REACTIONS (9)
  - COMPLETED SUICIDE [None]
  - DEPRESSION [None]
  - DRUG INEFFECTIVE [None]
  - DRUG TOXICITY [None]
  - HOMICIDAL IDEATION [None]
  - MOOD SWINGS [None]
  - OVERDOSE [None]
  - SUICIDAL IDEATION [None]
  - SUICIDE ATTEMPT [None]
